FAERS Safety Report 5912673-2 (Version None)
Quarter: 2008Q4

REPORT INFORMATION
  Report Type: 
  Country: None (occurrence: None)
  Receive Date: 20081008
  Receipt Date: 20081001
  Transmission Date: 20090506
  Serious: Yes (Hospitalization, Other)
  Sender: FDA-Public Use
  Company Number: US-ROXANE LABORATORIES, INC.-2008-RO-00096RO

PATIENT
  Age: 86 Year
  Sex: Female

DRUGS (21)
  1. DIGOXIN [Suspect]
  2. FUROSEMIDE [Suspect]
  3. HYDROCHLOROTHIAZIDE [Suspect]
  4. ASPIRIN [Suspect]
  5. CARVEDILOL [Suspect]
  6. ATORVASTATIN [Suspect]
  7. LOSARTAN [Suspect]
  8. AMIODARONE [Suspect]
  9. IRON [Suspect]
  10. LEVOTHYROXINE SODIUM [Suspect]
  11. ISOSORBIDE [Suspect]
  12. VENLAFAXINE HCL [Suspect]
  13. OXYGEN [Concomitant]
     Route: 045
  14. ATROPINE [Concomitant]
     Route: 042
  15. SODIUM BICARBONATE [Concomitant]
  16. GLUCOSE [Concomitant]
  17. INSULIN [Concomitant]
  18. SODIUM POLYSTYRENE SULFONATE [Concomitant]
     Route: 048
  19. SODIUM CHLORIDE [Concomitant]
     Route: 042
  20. HYDRATION [Concomitant]
     Indication: FLUID REPLACEMENT
     Route: 042
  21. DIGOXIN-FAB FRAGMENT [Concomitant]
     Indication: THERAPEUTIC AGENT TOXICITY

REACTIONS (7)
  - AGITATION [None]
  - BRADYCARDIA [None]
  - CONFUSIONAL STATE [None]
  - ELECTROCARDIOGRAM ST-T CHANGE [None]
  - HYPERKALAEMIA [None]
  - RENAL FAILURE [None]
  - THERAPEUTIC AGENT TOXICITY [None]
